FAERS Safety Report 8197804-9 (Version None)
Quarter: 2012Q1

REPORT INFORMATION
  Report Type: 
  Country: None (occurrence: None)
  Receive Date: 20120309
  Receipt Date: 20120301
  Transmission Date: 20120608
  Serious: Yes (Hospitalization)
  Sender: FDA-Public Use
  Company Number: US-BAYER-2011-075712

PATIENT
  Age: 19 Year
  Sex: Female
  Weight: 150.57 kg

DRUGS (3)
  1. CYMBALTA [Concomitant]
     Indication: HEADACHE
     Dosage: 90 MG, QD
     Dates: start: 20080917
  2. YAZ [Suspect]
     Indication: METRORRHAGIA
     Dosage: UNK
     Dates: start: 20080601, end: 20080901
  3. UNCODEABLE ^UNCLASSIFIABLE^ [Concomitant]
     Indication: HEADACHE
     Dosage: UNK UNK, PRN
     Dates: start: 19990101

REACTIONS (5)
  - CHOLECYSTITIS ACUTE [None]
  - INJURY [None]
  - GALLBLADDER DISORDER [None]
  - EMOTIONAL DISTRESS [None]
  - PAIN [None]
